FAERS Safety Report 21131061 (Version 1)
Quarter: 2022Q3

REPORT INFORMATION
  Report Type: Report from Study
  Country: DE (occurrence: DE)
  Receive Date: 20220726
  Receipt Date: 20220726
  Transmission Date: 20221027
  Serious: Yes (Hospitalization)
  Sender: FDA-Public Use
  Company Number: DE-ABBVIE-22K-062-4480278-00

PATIENT
  Age: 52 Year
  Sex: Female

DRUGS (1)
  1. RINVOQ [Suspect]
     Active Substance: UPADACITINIB
     Indication: Ankylosing spondylitis
     Route: 048
     Dates: start: 20220704

REACTIONS (12)
  - Blood pressure fluctuation [Not Recovered/Not Resolved]
  - Troponin increased [Not Recovered/Not Resolved]
  - Vertigo [Unknown]
  - Discomfort [Unknown]
  - Oral disorder [Recovered/Resolved]
  - Malaise [Unknown]
  - Paraesthesia [Unknown]
  - Hyperglycaemia [Unknown]
  - N-terminal prohormone brain natriuretic peptide increased [Unknown]
  - Thirst [Not Recovered/Not Resolved]
  - Blood cholesterol increased [Not Recovered/Not Resolved]
  - Low density lipoprotein increased [Not Recovered/Not Resolved]

NARRATIVE: CASE EVENT DATE: 20220701
